FAERS Safety Report 6360837-9 (Version None)
Quarter: 2009Q3

REPORT INFORMATION
  Report Type: 
  Country: None (occurrence: None)
  Receive Date: 20090918
  Receipt Date: 20090903
  Transmission Date: 20100115
  Serious: Yes (Other)
  Sender: FDA-Public Use
  Company Number: JP-ROCHE-655926

PATIENT
  Age: 72 Year
  Sex: Female

DRUGS (2)
  1. PEGASYS [Suspect]
     Indication: DRUG USE FOR UNKNOWN INDICATION
     Route: 058
     Dates: start: 20090327, end: 20090501
  2. PEGASYS [Suspect]
     Route: 058
     Dates: start: 20090501, end: 20090526

REACTIONS (1)
  - LEUKAEMIA MONOCYTIC [None]
